FAERS Safety Report 6304390-4 (Version None)
Quarter: 2009Q3

REPORT INFORMATION
  Report Type: 
  Country: None (occurrence: None)
  Receive Date: 20090811
  Receipt Date: 20090731
  Transmission Date: 20100115
  Serious: Yes (Other)
  Sender: FDA-Public Use
  Company Number: PHEH2009US08581

PATIENT
  Sex: Female

DRUGS (11)
  1. RECLAST [Suspect]
     Dosage: UNK, UNK
  2. RECLAST [Suspect]
     Dosage: UNK, ONCE/SINGLE
     Dates: start: 20090730, end: 20090730
  3. TEGRETOL [Concomitant]
     Dosage: UNK, UNK
  4. SEROQUEL [Concomitant]
     Dosage: UNK, UNK
  5. LEVOTHYROXINE [Concomitant]
     Dosage: UNK, UNK
  6. TAXOL [Concomitant]
     Dosage: UNK, UNK
  7. BUSPIRONE HCL [Concomitant]
     Dosage: UNK, UNK
  8. WELLBUTRIN [Concomitant]
     Dosage: UNK, UNK
  9. VITAMIN D [Concomitant]
     Dosage: UNK, UNK
  10. CALCIUM [Concomitant]
     Dosage: UNK, UNK
  11. FISH OIL [Concomitant]
     Dosage: UNK, UNK

REACTIONS (2)
  - OSTEONECROSIS [None]
  - TOOTH EXTRACTION [None]
